FAERS Safety Report 21086888 (Version 2)
Quarter: 2022Q3

REPORT INFORMATION
  Report Type: Spontaneous
  Country: US (occurrence: US)
  Receive Date: 20220715
  Receipt Date: 20220811
  Transmission Date: 20221026
  Serious: Yes (Other)
  Sender: FDA-Public Use
  Company Number: US-ALK-ABELLO A/S-2022AA002176

PATIENT

DRUGS (51)
  1. PLANTAGO LANCEOLATA POLLEN [Suspect]
     Active Substance: PLANTAGO LANCEOLATA POLLEN
     Indication: Skin test
     Dosage: UNK
     Route: 023
     Dates: start: 20220620
  2. PLANTAGO LANCEOLATA POLLEN [Suspect]
     Active Substance: PLANTAGO LANCEOLATA POLLEN
     Dosage: 1:20 WEIGHT/VOLUME, PERCUTANOUS
     Route: 003
     Dates: start: 20220620
  3. BETULA PENDULA POLLEN [Suspect]
     Active Substance: BETULA PENDULA POLLEN
     Indication: Skin test
     Dosage: UNK
     Route: 023
     Dates: start: 20220620
  4. BETULA PENDULA POLLEN [Suspect]
     Active Substance: BETULA PENDULA POLLEN
     Dosage: 1:20 WEIGHT/VOLUME, PERCUTANEOUS
     Route: 003
     Dates: start: 20220620
  5. FRAXINUS AMERICANA POLLEN [Suspect]
     Active Substance: FRAXINUS AMERICANA POLLEN
     Indication: Skin test
     Dosage: UNK
     Route: 023
     Dates: start: 20220620
  6. FRAXINUS AMERICANA POLLEN [Suspect]
     Active Substance: FRAXINUS AMERICANA POLLEN
     Dosage: 1:20 WEIGHT/VOLUME, PERCUTANOUS
     Route: 003
     Dates: start: 20220620
  7. ULMUS AMERICANA POLLEN [Suspect]
     Active Substance: ULMUS AMERICANA POLLEN
     Indication: Skin test
     Dosage: UNK
     Route: 023
     Dates: start: 20220620
  8. ULMUS AMERICANA POLLEN [Suspect]
     Active Substance: ULMUS AMERICANA POLLEN
     Dosage: UNK1:20 WEIGHT/VOLUME, PERCUTANOUS
     Route: 003
     Dates: start: 20220620
  9. ALTERNARIA ALTERNATA [Suspect]
     Active Substance: ALTERNARIA ALTERNATA
     Indication: Skin test
     Dosage: UNK
     Route: 023
     Dates: start: 20220620
  10. HISTAMINE PHOSPHATE [Suspect]
     Active Substance: HISTAMINE PHOSPHATE
     Indication: Skin test
     Dosage: UNK
     Route: 023
     Dates: start: 20220620
  11. HISTAMINE PHOSPHATE [Suspect]
     Active Substance: HISTAMINE PHOSPHATE
     Indication: Skin test
     Dosage: PERCUTANEOUS
     Route: 003
     Dates: start: 20220620
  12. CARYA OVATA POLLEN [Suspect]
     Active Substance: CARYA OVATA POLLEN
     Indication: Skin test
     Dosage: UNK
     Route: 023
     Dates: start: 20220620
  13. CARYA OVATA POLLEN [Suspect]
     Active Substance: CARYA OVATA POLLEN
     Dosage: 1:20 WEIGHT/VOLUME, PERCUTANOUS
     Route: 003
     Dates: start: 20220620
  14. ACER SACCHARUM POLLEN [Suspect]
     Active Substance: ACER SACCHARUM POLLEN
     Indication: Skin test
     Dosage: UNK
     Route: 023
     Dates: start: 20220620
  15. ACER SACCHARUM POLLEN [Suspect]
     Active Substance: ACER SACCHARUM POLLEN
     Dosage: UNK
     Route: 003
     Dates: start: 20220620
  16. QUERCUS ALBA POLLEN [Suspect]
     Active Substance: QUERCUS ALBA POLLEN
     Indication: Skin test
     Dosage: UNK
     Route: 023
     Dates: start: 20220620
  17. QUERCUS ALBA POLLEN [Suspect]
     Active Substance: QUERCUS ALBA POLLEN
     Dosage: 2:20 WEIGHT/VOLUME, PERCUTANOUS
     Route: 003
     Dates: start: 20220620
  18. POPULUS ALBA POLLEN [Suspect]
     Active Substance: POPULUS ALBA POLLEN
     Indication: Skin test
     Dosage: UNK
     Route: 023
     Dates: start: 20220620
  19. POPULUS ALBA POLLEN [Suspect]
     Active Substance: POPULUS ALBA POLLEN
     Dosage: 1:20 WEIGHT/VOLUME, PERCUTANOUS
     Route: 003
     Dates: start: 20220620
  20. ALLERGENIC EXTRACT- REDTOP AGROSTIS ALBA [Suspect]
     Active Substance: AGROSTIS GIGANTEA POLLEN
     Indication: Skin test
     Dosage: UNK
     Route: 023
     Dates: start: 20220620
  21. ALLERGENIC EXTRACT- REDTOP AGROSTIS ALBA [Suspect]
     Active Substance: AGROSTIS GIGANTEA POLLEN
     Dosage: 100,000BAU/ML, PERCUTANOUS
     Route: 003
     Dates: start: 20220620
  22. PHLEUM PRATENSE POLLEN [Suspect]
     Active Substance: PHLEUM PRATENSE POLLEN
     Indication: Skin test
     Dosage: UNK
     Route: 023
     Dates: start: 20220620
  23. PHLEUM PRATENSE POLLEN [Suspect]
     Active Substance: PHLEUM PRATENSE POLLEN
     Dosage: 100,000BAU/ML, PERCUTANOUS
     Route: 003
     Dates: start: 20220620
  24. XANTHIUM STRUMARIUM POLLEN [Suspect]
     Active Substance: XANTHIUM STRUMARIUM POLLEN
     Indication: Skin test
     Dosage: UNK
     Route: 023
     Dates: start: 20220620
  25. XANTHIUM STRUMARIUM POLLEN [Suspect]
     Active Substance: XANTHIUM STRUMARIUM POLLEN
     Dosage: 1:20 WEIGHT/VOLUME, PERCUTANOUS
     Route: 003
     Dates: start: 20220620
  26. CHENOPODIUM ALBUM POLLEN [Suspect]
     Active Substance: CHENOPODIUM ALBUM POLLEN
     Indication: Skin test
     Dosage: UNK
     Route: 023
     Dates: start: 20220620
  27. CHENOPODIUM ALBUM POLLEN [Suspect]
     Active Substance: CHENOPODIUM ALBUM POLLEN
     Dosage: 1:20 WWIGHT/VOLUME, PERCUTANOUS
     Route: 003
     Dates: start: 20220620
  28. IVA ANNUA POLLEN [Suspect]
     Active Substance: IVA ANNUA POLLEN
     Indication: Skin test
     Dosage: UNK
     Route: 023
     Dates: start: 20220620
  29. IVA ANNUA POLLEN [Suspect]
     Active Substance: IVA ANNUA POLLEN
     Dosage: 1:20 WEIGHT/VOLUME, PERCUTANOUS
     Route: 003
     Dates: start: 20220620
  30. PERIPLANETA AMERICANA [Suspect]
     Active Substance: PERIPLANETA AMERICANA
     Indication: Skin test
     Dosage: UNK
     Route: 023
     Dates: start: 20220620
  31. PERIPLANETA AMERICANA [Suspect]
     Active Substance: PERIPLANETA AMERICANA
     Dosage: 1:20 WEIGHT/VOLUME, PERCUTANOUS
     Route: 003
     Dates: start: 20220620
  32. FELIS CATUS HAIR [Suspect]
     Active Substance: FELIS CATUS HAIR
     Indication: Skin test
     Dosage: UNK
     Route: 023
     Dates: start: 20220620
  33. FELIS CATUS HAIR [Suspect]
     Active Substance: FELIS CATUS HAIR
     Dosage: 10,000BAU/ML, PERCUTANOUS
     Route: 003
     Dates: start: 20220620
  34. ASPERGILLUS FUMIGATUS [Suspect]
     Active Substance: ASPERGILLUS FUMIGATUS
     Indication: Skin test
     Dosage: UNK
     Route: 023
     Dates: start: 20220620
  35. ASPERGILLUS FUMIGATUS [Suspect]
     Active Substance: ASPERGILLUS FUMIGATUS
     Dosage: 1:20 WEIGHT/VOLUME, PERCUTANEOUS
     Dates: start: 20220620
  36. CLADOSPORIUM CLADOSPORIOIDES [Suspect]
     Active Substance: CLADOSPORIUM CLADOSPORIOIDES
     Indication: Skin test
     Dosage: UNK
     Route: 023
     Dates: start: 20220622
  37. CLADOSPORIUM CLADOSPORIOIDES [Suspect]
     Active Substance: CLADOSPORIUM CLADOSPORIOIDES
     Dosage: UNK
     Route: 003
     Dates: start: 20220622
  38. PENICILLIUM NOTATUM [Suspect]
     Active Substance: PENICILLIUM CHRYSOGENUM VAR. CHRYSOGENUM
     Indication: Skin test
     Dosage: UNK
     Route: 023
     Dates: start: 20220620
  39. PENICILLIUM NOTATUM [Suspect]
     Active Substance: PENICILLIUM CHRYSOGENUM VAR. CHRYSOGENUM
     Dosage: 1:20 WEIGHT/VOLUME, PERCUTANEOUS
     Route: 003
     Dates: start: 20220620
  40. PINUS STROBUS POLLEN [Suspect]
     Active Substance: PINUS STROBUS POLLEN
     Indication: Skin test
     Dosage: 1:20 WEIGHT/VOLUME, PERCUTANOUS
     Route: 003
     Dates: start: 20220620
  41. SALIX NIGRA POLLEN [Suspect]
     Active Substance: SALIX NIGRA POLLEN
     Indication: Skin test
     Dosage: 1:20 WEIGHT/VOLUME, PERCUTANEOUS
     Route: 003
     Dates: start: 20220620
  42. POA PRATENSIS POLLEN [Suspect]
     Active Substance: POA PRATENSIS POLLEN
     Indication: Skin test
     Dosage: 100,000 BAU/ML, PERCUTANOUS
     Route: 003
     Dates: start: 20220620
  43. DACTYLIS GLOMERATA POLLEN [Suspect]
     Active Substance: DACTYLIS GLOMERATA POLLEN
     Indication: Skin test
     Dosage: 100,000 BAU/ML, PERCUTANOUS
     Route: 003
     Dates: start: 20220620
  44. AMBROSIA ARTEMISIIFOLIA POLLEN\AMBROSIA TRIFIDA POLLEN [Suspect]
     Active Substance: AMBROSIA ARTEMISIIFOLIA POLLEN\AMBROSIA TRIFIDA POLLEN
     Indication: Skin test
     Dosage: 1:20 WEIGHT/VOLUME, PERCUTANOUS
     Dates: start: 20220620
  45. DERMATOPHAGOIDES PTERONYSSINUS [Suspect]
     Active Substance: DERMATOPHAGOIDES PTERONYSSINUS
     Indication: Skin test
     Dosage: 10,000AU/ML, PERCUTANOUS
     Route: 003
     Dates: start: 20220620
  46. DERMATOPHAGOIDES FARINAE [Suspect]
     Active Substance: DERMATOPHAGOIDES FARINAE
     Indication: Skin test
     Dosage: 10,000AU/ML, PERCUTANOUS
     Route: 003
     Dates: start: 20220620
  47. CANIS LUPUS FAMILIARIS SKIN [Suspect]
     Active Substance: CANIS LUPUS FAMILIARIS SKIN
     Indication: Skin test
     Dosage: 12:20 WEIGHT/VOLUME, PERCUTANOUS
     Route: 003
     Dates: start: 20220620
  48. MUS MUSCULUS SKIN [Suspect]
     Active Substance: MUS MUSCULUS SKIN
     Indication: Skin test
     Dosage: 1:20 WEIGHT/VOLUME, PERCUTANEOUS
     Dates: start: 20220620
  49. ANAS PLATYRHYNCHOS FEATHER\ANSER ANSER FEATHER\GALLUS GALLUS FEATHER [Suspect]
     Active Substance: ANAS PLATYRHYNCHOS FEATHER\ANSER ANSER FEATHER\GALLUS GALLUS FEATHER
     Indication: Skin test
     Dosage: 1:220 WEIGHT/VOLUME, PERCUTANOUS
     Route: 003
     Dates: start: 20220620
  50. STERILE DILUENT FOR ALLERGENIC EXTRACT NOS [Suspect]
     Active Substance: ALBUMIN HUMAN OR GLYCERIN OR PHENOL
     Indication: Skin test
     Dosage: 1:20 WEIGHT/VOLUME, PERCUTANEOUS
     Dates: start: 20220620
  51. STERILE DILUENT FOR ALLERGENIC EXTRACT NOS [Suspect]
     Active Substance: ALBUMIN HUMAN OR GLYCERIN OR PHENOL
     Dosage: UNK
     Route: 023
     Dates: start: 20220620

REACTIONS (3)
  - Anaphylactic reaction [Recovered/Resolved]
  - Skin test positive [Recovered/Resolved]
  - False negative investigation result [Unknown]

NARRATIVE: CASE EVENT DATE: 20220620
